FAERS Safety Report 7474999-3 (Version None)
Quarter: 2011Q2

REPORT INFORMATION
  Report Type: 
  Country: None (occurrence: None)
  Receive Date: 20110505
  Receipt Date: 20110303
  Transmission Date: 20111010
  Serious: Yes (Disabling)
  Sender: FDA-Public Use
  Company Number: GB-ACCORD-008374

PATIENT
  Age: 72 Year
  Sex: Male
  Weight: 92 kg

DRUGS (8)
  1. FELODIPINE [Suspect]
     Indication: PRODUCT USED FOR UNKNOWN INDICATION
     Dosage: 5.00-MG-1.00 TIMES PER-1.0DAYS / ORAL
     Route: 048
     Dates: start: 20101219, end: 20110201
  2. ALFUZOSIN(ALFUZOSIN) [Concomitant]
  3. AMLODIPINE [Suspect]
     Indication: HYPERTENSION
     Dosage: 10.00-MG-1.00 TIMES PER-1.0DAYS/ORAL
     Route: 048
  4. ATORVASTATIN [Concomitant]
  5. ASPIRIN [Concomitant]
  6. BISPROLOL(BISOPROLOL) [Concomitant]
  7. FINASTERIDE [Suspect]
     Indication: PROSTATIC DISORDER
     Dosage: 5.00-MG-1.00 TIMES PER-1.0DAYS / ORAL
     Route: 048
  8. LISINOPRIL [Concomitant]

REACTIONS (7)
  - WRONG DRUG ADMINISTERED [None]
  - MYALGIA [None]
  - DRUG DISPENSING ERROR [None]
  - ARTHRALGIA [None]
  - BLOOD CALCIUM DECREASED [None]
  - DRUG PRESCRIBING ERROR [None]
  - MUSCULOSKELETAL PAIN [None]
